FAERS Safety Report 5158378-X (Version None)
Quarter: 2006Q4

REPORT INFORMATION
  Report Type: 
  Country: None (occurrence: None)
  Receive Date: 20061128
  Receipt Date: 20061102
  Transmission Date: 20070319
  Serious: Yes (Other)
  Sender: FDA-Public Use
  Company Number: AU-SANOFI-SYNTHELABO-A01200609484

PATIENT
  Sex: Male

DRUGS (1)
  1. STILNOX CR [Suspect]
     Indication: SLEEP DISORDER
     Dosage: 12.5 MG
     Route: 048
     Dates: start: 20061004, end: 20061006

REACTIONS (1)
  - PSYCHOTIC DISORDER [None]
